FAERS Safety Report 7828565 (Version 2)
Quarter: 2012Q4

REPORT INFORMATION
  Report Type: 
  Country: US (occurrence: US)
  Receive Date: 20110225
  Receipt Date: 20121107
  Transmission Date: 20130627
  Serious: Yes (Other)
  Sender: FDA-Public Use
  Company Number: US-ROCHE-734365

PATIENT
  Age: 18 Year
  Sex: Male
  Weight: 72.6 kg

DRUGS (5)
  1. ACCUTANE [Suspect]
     Indication: ACNE
     Route: 048
  2. ACCUTANE [Suspect]
     Route: 048
     Dates: start: 20071210, end: 200802
  3. ACCUTANE [Suspect]
     Route: 048
  4. CLARAVIS [Suspect]
     Indication: PRODUCT USED FOR UNKNOWN INDICATION
     Route: 048
  5. SOLODYN [Concomitant]
     Indication: ACNE
     Route: 065

REACTIONS (9)
  - Colitis ulcerative [Recovering/Resolving]
  - Inflammatory bowel disease [Unknown]
  - Haemorrhoids [Unknown]
  - Rectal haemorrhage [Unknown]
  - Abdominal pain [Unknown]
  - Nausea [Unknown]
  - Dry skin [Unknown]
  - Acne [Unknown]
  - Blood cholesterol increased [Unknown]
